FAERS Safety Report 6028152-0 (Version None)
Quarter: 2008Q4

REPORT INFORMATION
  Report Type: 
  Country: None (occurrence: None)
  Receive Date: 20081231
  Receipt Date: 20081231
  Transmission Date: 20090506
  Serious: Yes (Hospitalization)
  Sender: FDA-Public Use
  Company Number: None

PATIENT
  Sex: Male
  Weight: 66 kg

DRUGS (9)
  1. PEG-L-ASPARAGINASE (K-H) [Suspect]
     Dosage: 9200 UNITS
  2. PREDNISONE [Suspect]
     Dosage: 350 MG
  3. VINCRISTINE SULFATE [Suspect]
     Dosage: 3.5 MG
  4. CYCLOPHOSPHAMIDE [Suspect]
     Dosage: 1840 MG
  5. CYTARABINE [Suspect]
     Dosage: 1120 MG
  6. DEXAMETHASONE [Suspect]
     Dosage: 252 MG
  7. DOXORUBICIN HYDROCHLORIDE [Suspect]
     Dosage: 138 MG
  8. MERCAPTOPURINE [Suspect]
     Dosage: 650 MG
  9. METHOTREXATE [Suspect]
     Dosage: 45 MG

REACTIONS (5)
  - ABDOMINAL PAIN [None]
  - HYPOVOLAEMIC SHOCK [None]
  - PANCREATITIS NECROTISING [None]
  - PERITONEAL HAEMORRHAGE [None]
  - VOMITING [None]
